FAERS Safety Report 5022793-5 (Version None)
Quarter: 2006Q2

REPORT INFORMATION
  Report Type: 
  Country: None (occurrence: None)
  Receive Date: 20060426
  Receipt Date: 20051230
  Transmission Date: 20061013
  Serious: Yes (Other)
  Sender: FDA-Public Use
  Company Number: 2005156720

PATIENT
  Age: 51 Year
  Sex: Female

DRUGS (7)
  1. LYRICA [Suspect]
     Indication: ILL-DEFINED DISORDER
     Dosage: 150 MG (50 MG, 3 IN 1 D)
     Dates: start: 20051004, end: 20051008
  2. ATENOLOL [Concomitant]
  3. ACCUPRIL [Concomitant]
  4. PROVENTIL [Concomitant]
  5. FLEXERIL [Concomitant]
  6. SEROQUEL [Concomitant]
  7. DEPAKOTE [Concomitant]

REACTIONS (3)
  - FEELING ABNORMAL [None]
  - INSOMNIA [None]
  - PSYCHOMOTOR HYPERACTIVITY [None]
